FAERS Safety Report 6497464-9 (Version None)
Quarter: 2009Q4

REPORT INFORMATION
  Report Type: 
  Country: None (occurrence: None)
  Receive Date: 20091215
  Receipt Date: 20091113
  Transmission Date: 20100525
  Serious: Yes (Hospitalization)
  Sender: FDA-Public Use
  Company Number: US-ASTRAZENECA-2009SE26315

PATIENT
  Age: 732 Month
  Sex: Male

DRUGS (5)
  1. PULMICORT FLEXHALER [Suspect]
     Route: 055
  2. SYMBICORT [Suspect]
     Route: 055
  3. ALBUTEROL [Concomitant]
  4. NASONEX [Concomitant]
  5. PRO-AIR [Concomitant]

REACTIONS (5)
  - CHEST DISCOMFORT [None]
  - DRUG DOSE OMISSION [None]
  - GALLBLADDER DISORDER [None]
  - POSTNASAL DRIP [None]
  - SINUSITIS [None]
